FAERS Safety Report 9636022 (Version 1)
Quarter: 2013Q4

REPORT INFORMATION
  Report Type: Spontaneous
  Country: US (occurrence: US)
  Receive Date: 20131021
  Receipt Date: 20131021
  Transmission Date: 20140711
  Serious: No
  Sender: FDA-Public Use
  Company Number: US-BAYER-2013-122857

PATIENT
  Age: 68 Year
  Sex: Male
  Weight: 122 kg

DRUGS (9)
  1. ALEVE CAPLET [Suspect]
     Indication: ANALGESIC THERAPY
     Dosage: 1 DF, BID
     Route: 048
     Dates: start: 201301
  2. GLUCOSAMIN [Concomitant]
  3. ACETAMINOPHEN [Concomitant]
  4. IBUPROFEN [Concomitant]
  5. CENTRUM [VIT C,BETACAROT,D3,B9,MIN NOS,RETINOL,VIT E,VIT B NOS] [Concomitant]
  6. METFORMIN [Concomitant]
  7. LISINOPRIL HYDROCHLORTHIAZID [Concomitant]
  8. BAYER ASPIRIN REGIMEN REGULAR 325 MG STRENGTH [Concomitant]
  9. LORAZEPAM [Concomitant]

REACTIONS (5)
  - Pruritus [Not Recovered/Not Resolved]
  - Pruritus genital [Not Recovered/Not Resolved]
  - Incorrect drug administration duration [None]
  - Drug ineffective [None]
  - Drug ineffective [None]
